FAERS Safety Report 18257842 (Version 4)
Quarter: 2022Q2

REPORT INFORMATION
  Report Type: Spontaneous
  Country: US (occurrence: None)
  Receive Date: 20200911
  Receipt Date: 20220407
  Transmission Date: 20220721
  Serious: Yes (Disabling)
  Sender: FDA-Public Use
  Company Number: 2020SF11780

PATIENT
  Age: 763 Month
  Sex: Female
  Weight: 88.9 kg

DRUGS (22)
  1. FASENRA [Suspect]
     Active Substance: BENRALIZUMAB
     Indication: Eosinophil count
     Dosage: 30MG/ML EVERY FOUR WEEKS
     Route: 058
     Dates: start: 20200805, end: 20201204
  2. ROSUVASTATIN [Suspect]
     Active Substance: ROSUVASTATIN
     Dosage: HALF TABLET EVERY OTHER DAY
     Route: 048
  3. ROSUVASTATIN [Suspect]
     Active Substance: ROSUVASTATIN
     Route: 048
  4. PREDNISONE [Concomitant]
     Active Substance: PREDNISONE
     Indication: Wheezing
     Dosage: MONTHLY
     Route: 065
     Dates: end: 202007
  5. BRIO INHALER [Concomitant]
     Route: 055
  6. ALBUTEROL [Concomitant]
     Active Substance: ALBUTEROL
     Indication: Asthma
     Dosage: 90 MCG 2 PUFFS AS NEEDED
  7. TYLENOL [Concomitant]
     Active Substance: ACETAMINOPHEN
  8. FOSAMAX [Concomitant]
     Active Substance: ALENDRONATE SODIUM
     Dosage: 70 MG, 1 TAB ONCE A WEEK
     Route: 048
  9. VITMIN D3 [Concomitant]
  10. ALBUTEROL\IPRATROPIUM [Concomitant]
     Active Substance: ALBUTEROL\IPRATROPIUM
     Dosage: 3 ML QID
     Route: 055
  11. TRIAMCINOLONE [Concomitant]
     Active Substance: TRIAMCINOLONE
     Route: 061
  12. CALCIUM\VITAMIN D [Concomitant]
     Active Substance: CALCIUM\VITAMIN D
     Route: 048
  13. CYCLOBENZAPRINE [Concomitant]
     Active Substance: CYCLOBENZAPRINE
     Route: 048
  14. EPINEPHRINE [Concomitant]
     Active Substance: EPINEPHRINE
  15. LASIX [Concomitant]
     Active Substance: FUROSEMIDE
     Route: 048
  16. LORATADINE [Concomitant]
     Active Substance: LORATADINE
     Route: 048
  17. LOSARTAN-HCL [Concomitant]
     Route: 048
  18. MONTELUKAST [Concomitant]
     Active Substance: MONTELUKAST SODIUM
     Route: 048
  19. DOXYCYCLINE [Concomitant]
     Active Substance: DOXYCYCLINE
  20. BREO ELLIPTA [Concomitant]
     Active Substance: FLUTICASONE FUROATE\VILANTEROL TRIFENATATE
  21. OMEPRAZOLE [Concomitant]
     Active Substance: OMEPRAZOLE
     Route: 048
  22. ALBUTEROL SULFATE [Concomitant]
     Active Substance: ALBUTEROL SULFATE
     Route: 055

REACTIONS (9)
  - Arthralgia [Recovered/Resolved]
  - Myalgia [Not Recovered/Not Resolved]
  - Fibromyalgia [Unknown]
  - Chills [Recovered/Resolved]
  - Insomnia [Unknown]
  - Sputum discoloured [Recovering/Resolving]
  - Pain [Recovered/Resolved]
  - Wheezing [Recovered/Resolved]
  - Headache [Recovered/Resolved]

NARRATIVE: CASE EVENT DATE: 20200801
